FAERS Safety Report 21944291 (Version 1)
Quarter: 2023Q1

REPORT INFORMATION
  Report Type: Spontaneous
  Country: US (occurrence: US)
  Receive Date: 20230202
  Receipt Date: 20230202
  Transmission Date: 20230417
  Serious: Yes (Hospitalization, Other)
  Sender: FDA-Public Use
  Company Number: US-MLMSERVICE-20230119-4049589-1

PATIENT
  Age: 78 Year
  Sex: Female

DRUGS (4)
  1. MYCOPHENOLATE MOFETIL [Suspect]
     Active Substance: MYCOPHENOLATE MOFETIL
     Indication: Myasthenia gravis
  2. PREDNISONE [Suspect]
     Active Substance: PREDNISONE
     Indication: Myasthenia gravis
  3. PYRIDOSTIGMINE [Concomitant]
     Active Substance: PYRIDOSTIGMINE
     Indication: Myasthenia gravis
  4. PREDNISONE [Suspect]
     Active Substance: PREDNISONE
     Indication: Myasthenia gravis

REACTIONS (10)
  - Failure to thrive [Unknown]
  - Ulcer [Unknown]
  - Arthritis bacterial [Unknown]
  - Bacterial infection [Unknown]
  - Cellulitis [Recovered/Resolved]
  - Mental status changes [Unknown]
  - Bursitis [Unknown]
  - Pulmonary nocardiosis [Unknown]
  - Nocardiosis [Unknown]
  - Off label use [Unknown]
